FAERS Safety Report 7160518-8 (Version None)
Quarter: 2010Q4

REPORT INFORMATION
  Report Type: 
  Country: None (occurrence: None)
  Receive Date: 20101214
  Receipt Date: 20101207
  Transmission Date: 20110411
  Serious: Yes (Death)
  Sender: FDA-Public Use
  Company Number: NL-PFIZER INC-2010166577

PATIENT
  Age: 69 Year
  Sex: Male
  Weight: 73 kg

DRUGS (4)
  1. LYRICA [Suspect]
     Dosage: 300 MG, 1X/DAY
     Dates: start: 20080101
  2. PANTOZOL [Concomitant]
     Dosage: 40 MG, UNK
     Dates: start: 20101001
  3. METFORMIN [Concomitant]
     Dosage: 500 MG, 3X/DAY
     Dates: start: 20081001
  4. MOVICOLON [Concomitant]
     Dosage: UNK

REACTIONS (1)
  - PULMONARY FIBROSIS [None]
